FAERS Safety Report 8133306-3 (Version None)
Quarter: 2012Q1

REPORT INFORMATION
  Report Type: 
  Country: None (occurrence: None)
  Receive Date: 20120213
  Receipt Date: 20120202
  Transmission Date: 20120608
  Serious: Yes (Hospitalization, Other)
  Sender: FDA-Public Use
  Company Number: US-BRISTOL-MYERS SQUIBB COMPANY-16143653

PATIENT
  Age: 50 Year
  Sex: Male
  Weight: 82 kg

DRUGS (3)
  1. TRUVADA [Suspect]
  2. NORVIR [Suspect]
  3. REYATAZ [Suspect]
     Indication: HIV TEST
     Dosage: 200MG (TIMES TWO PILLS; ONCE DAILY
     Route: 048
     Dates: start: 20030101, end: 20100601

REACTIONS (5)
  - SUICIDAL BEHAVIOUR [None]
  - BRADYPHRENIA [None]
  - JAUNDICE [None]
  - STUPOR [None]
  - FEELING ABNORMAL [None]
